FAERS Safety Report 8759364 (Version 1)
Quarter: 2012Q4

REPORT INFORMATION
  Report Type: 
  Country: FR (occurrence: FR)
  Receive Date: 20120829
  Receipt Date: 20120829
  Transmission Date: 20130627
  Serious: Yes (Hospitalization)
  Sender: FDA-Public Use
  Company Number: FR-BRISTOL-MYERS SQUIBB COMPANY-16870479

PATIENT
  Age: 63 Year
  Sex: Male

DRUGS (5)
  1. COUMADIN [Suspect]
  2. PRAVASTATIN SODIUM [Suspect]
     Route: 048
  3. PREVISCAN [Suspect]
     Route: 048
  4. SOLUPRED [Suspect]
     Indication: BRONCHITIS
     Route: 048
     Dates: start: 2012
  5. RAMIPRIL [Suspect]
     Route: 048

REACTIONS (4)
  - Hepatitis [Recovered/Resolved]
  - Pancreatitis [Recovered/Resolved]
  - General physical health deterioration [None]
  - Pancreatic necrosis [None]
